FAERS Safety Report 5705505-9 (Version None)
Quarter: 2008Q2

REPORT INFORMATION
  Report Type: 
  Country: None (occurrence: None)
  Receive Date: 20080411
  Receipt Date: 20080401
  Transmission Date: 20081010
  Serious: Yes (Hospitalization)
  Sender: FDA-Public Use
  Company Number: 02100-JPN-07-0720

PATIENT
  Age: 66 Year
  Sex: Male

DRUGS (8)
  1. PLETAAL (CILOSTAZOL) UNKNOWN [Suspect]
  2. ASPIRIN [Suspect]
     Dosage: 200 MG, QD ORAL
     Route: 048
     Dates: start: 20051227
  3. CLOPIDOGREL [Suspect]
     Dosage: 75 MG, QD; ORAL
     Route: 048
     Dates: start: 20051227
  4. EZETIMIBE (EZETIMIBE) UNKNOWN [Concomitant]
  5. SIMVASTATIN [Concomitant]
  6. IRBESARTAN (IRBESARTAN) UNKNOWN [Concomitant]
  7. ATENOLOL (ATENOLOL) UNKNOWN [Concomitant]
  8. NICORANDIL (NICORANDIL) UNKNOWN [Concomitant]

REACTIONS (3)
  - ANGINA UNSTABLE [None]
  - DYSPNOEA [None]
  - STRESS [None]
